FAERS Safety Report 10955585 (Version 1)
Quarter: 2015Q1

REPORT INFORMATION
  Report Type: Report from Study
  Country: US (occurrence: US)
  Receive Date: 20150326
  Receipt Date: 20150326
  Transmission Date: 20150721
  Serious: Yes (Hospitalization)
  Sender: FDA-Public Use
  Company Number: US-AMGEN-USASL2015028061

PATIENT
  Age: 59 Year
  Sex: Female

DRUGS (1)
  1. ENBREL [Suspect]
     Active Substance: ETANERCEPT
     Indication: RHEUMATOID ARTHRITIS
     Dosage: 50 MG, QWK
     Route: 065
     Dates: start: 2007

REACTIONS (11)
  - Peripheral swelling [Not Recovered/Not Resolved]
  - Exostosis [Not Recovered/Not Resolved]
  - Pain in extremity [Not Recovered/Not Resolved]
  - Arthralgia [Not Recovered/Not Resolved]
  - Pneumothorax [Recovered/Resolved]
  - Arthropathy [Not Recovered/Not Resolved]
  - Spinal fusion surgery [Recovered/Resolved]
  - Pulmonary oedema [Recovered/Resolved]
  - Impaired work ability [Not Recovered/Not Resolved]
  - Arthritis [Not Recovered/Not Resolved]
  - Pulmonary embolism [Recovered/Resolved]
